FAERS Safety Report 24421583 (Version 2)
Quarter: 2024Q4

REPORT INFORMATION
  Report Type: Report from Study
  Country: US (occurrence: US)
  Receive Date: 20241010
  Receipt Date: 20241015
  Transmission Date: 20250115
  Serious: Yes (Hospitalization, Other)
  Sender: ABBVIE
  Company Number: US-ABBVIE-5955038

PATIENT
  Sex: Male

DRUGS (1)
  1. HUMIRA [Suspect]
     Active Substance: ADALIMUMAB
     Indication: Colitis ulcerative
     Dosage: FORM STRENGTH 40 MG
     Route: 058
     Dates: start: 202402

REACTIONS (16)
  - Large intestinal haemorrhage [Unknown]
  - Joint stiffness [Not Recovered/Not Resolved]
  - Arthralgia [Not Recovered/Not Resolved]
  - Inflammation [Unknown]
  - Anaemia [Unknown]
  - Haemorrhoids [Not Recovered/Not Resolved]
  - Mobility decreased [Unknown]
  - Neck pain [Not Recovered/Not Resolved]
  - Musculoskeletal disorder [Unknown]
  - Pain in extremity [Not Recovered/Not Resolved]
  - Muscle spasms [Unknown]
  - Rash [Unknown]
  - Insomnia [Not Recovered/Not Resolved]
  - Irritable bowel syndrome [Unknown]
  - Back pain [Not Recovered/Not Resolved]
  - Musculoskeletal stiffness [Not Recovered/Not Resolved]

NARRATIVE: CASE EVENT DATE: 20240101
